FAERS Safety Report 10052395 (Version 1)
Quarter: 2014Q2

REPORT INFORMATION
  Report Type: Spontaneous
  Country: IE (occurrence: IE)
  Receive Date: 20140402
  Receipt Date: 20140402
  Transmission Date: 20141212
  Serious: Yes (Other)
  Sender: FDA-Public Use
  Company Number: IE-JNJFOC-20140315968

PATIENT
  Age: 66 Year
  Sex: Male

DRUGS (10)
  1. XARELTO [Suspect]
     Indication: CEREBROVASCULAR ACCIDENT PROPHYLAXIS
     Route: 048
     Dates: start: 20140203, end: 20140220
  2. XARELTO [Suspect]
     Indication: ATRIAL FIBRILLATION
     Route: 048
     Dates: start: 20140203, end: 20140220
  3. FLECAINIDE [Concomitant]
     Route: 065
  4. BISOPROLOL [Concomitant]
     Route: 065
  5. TAMSULOSIN HYDROCHLORIDE [Concomitant]
     Route: 065
  6. NATRILIX [Concomitant]
     Route: 065
  7. RASILEZ [Concomitant]
     Route: 065
  8. SERC [Concomitant]
     Route: 065
  9. ROSUVASTATIN [Concomitant]
     Route: 065
  10. ZANIDIP [Concomitant]
     Route: 065

REACTIONS (1)
  - Rash [Not Recovered/Not Resolved]
